FAERS Safety Report 8420843-7 (Version None)
Quarter: 2012Q2

REPORT INFORMATION
  Report Type: 
  Country: None (occurrence: None)
  Receive Date: 20120530
  Receipt Date: 20120525
  Transmission Date: 20120825
  Serious: Yes (Hospitalization)
  Sender: FDA-Public Use
  Company Number: SP05774

PATIENT
  Age: 50 Year
  Sex: Male

DRUGS (8)
  1. ALDACTONE [Concomitant]
  2. LASIX [Concomitant]
  3. NOROXIN [Concomitant]
  4. PROPRANOLOL LP [Concomitant]
  5. PREVISCAN [Concomitant]
  6. XIFAXAN [Suspect]
     Indication: HEPATIC ENCEPHALOPATHY
     Dosage: (200 MG), ORAL
     Route: 048
     Dates: start: 20111207
  7. LEVOTHYROXINE SODIUM [Concomitant]
  8. HYDROCORTISONE [Concomitant]

REACTIONS (6)
  - ABDOMINAL DISTENSION [None]
  - HEADACHE [None]
  - PEPTOSTREPTOCOCCUS TEST POSITIVE [None]
  - UMBILICAL HERNIA [None]
  - ASTHENIA [None]
  - PYREXIA [None]
